FAERS Safety Report 9796641 (Version 1)
Quarter: 2014Q1

REPORT INFORMATION
  Report Type: Report from Study
  Country: US (occurrence: US)
  Receive Date: 20140103
  Receipt Date: 20140103
  Transmission Date: 20141002
  Serious: Yes (Other)
  Sender: FDA-Public Use
  Company Number: US-ABBVIE-13P-163-1183791-00

PATIENT
  Sex: Female
  Weight: 99.88 kg

DRUGS (11)
  1. HUMIRA [Suspect]
     Indication: PSORIATIC ARTHROPATHY
     Route: 058
     Dates: start: 2008, end: 2011
  2. HUMIRA [Suspect]
     Route: 058
     Dates: start: 2012
  3. METHOTREXATE [Suspect]
     Indication: PSORIATIC ARTHROPATHY
     Dates: start: 2010, end: 2011
  4. LASIX [Concomitant]
     Indication: FLUID RETENTION
  5. XANAX [Concomitant]
     Indication: PANIC ATTACK
  6. TIZANIDINE [Concomitant]
     Indication: MUSCLE SPASMS
  7. LEXAPRO [Concomitant]
     Indication: PANIC ATTACK
  8. NORCO [Concomitant]
     Indication: PSORIATIC ARTHROPATHY
     Dosage: 10/325, PRN
  9. TRAZADONE [Concomitant]
     Indication: PANIC ATTACK
     Dosage: 1/2 TAB, QHS
  10. PROGESTERONE [Concomitant]
     Indication: HORMONE REPLACEMENT THERAPY
  11. BIEST [Concomitant]
     Indication: HORMONE REPLACEMENT THERAPY

REACTIONS (5)
  - Adrenal insufficiency [Recovered/Resolved]
  - Hypopituitarism [Not Recovered/Not Resolved]
  - Hypothyroidism [Recovered/Resolved]
  - Malaise [Recovered/Resolved]
  - Psoriasis [Not Recovered/Not Resolved]
